FAERS Safety Report 23517094 (Version 1)
Quarter: 2024Q1

REPORT INFORMATION
  Report Type: Spontaneous
  Country: US (occurrence: US)
  Receive Date: 20240213
  Receipt Date: 20240213
  Transmission Date: 20240409
  Serious: Yes (Death, Hospitalization)
  Sender: FDA-Public Use
  Company Number: US-MYLANLABS-2024M1013340

PATIENT
  Age: 62 Year
  Sex: Female

DRUGS (4)
  1. PEMETREXED [Suspect]
     Active Substance: PEMETREXED
     Indication: Hereditary non-polyposis colorectal cancer syndrome
     Dosage: UNK
     Route: 065
  2. PEMBROLIZUMAB [Suspect]
     Active Substance: PEMBROLIZUMAB
     Indication: Hereditary non-polyposis colorectal cancer syndrome
     Dosage: UNK
     Route: 065
  3. RYBREVANT [Suspect]
     Active Substance: AMIVANTAMAB-VMJW
     Indication: Hereditary non-polyposis colorectal cancer syndrome
     Dosage: UNK
     Route: 065
  4. ENHERTU [Suspect]
     Active Substance: FAM-TRASTUZUMAB DERUXTECAN-NXKI
     Indication: Hereditary non-polyposis colorectal cancer syndrome
     Dosage: UNK, CYCLE (THREE CYCLES)
     Route: 065

REACTIONS (2)
  - Disease progression [Fatal]
  - Drug ineffective [Fatal]
